FAERS Safety Report 10056283 (Version 1)
Quarter: 2014Q2

REPORT INFORMATION
  Report Type: Spontaneous
  Country: US (occurrence: US)
  Receive Date: 20140403
  Receipt Date: 20140403
  Transmission Date: 20141212
  Serious: No
  Sender: FDA-Public Use
  Company Number: US-BAYER-2014-050332

PATIENT
  Age: 49 Year
  Sex: Female
  Weight: 78.91 kg

DRUGS (3)
  1. ALEVE CAPLET [Suspect]
     Indication: ANALGESIC THERAPY
     Dosage: 2 DF, 2 OR 3 TIMES A DAY
     Route: 048
  2. TRAMADOL [Concomitant]
  3. GABAPENTIN [Concomitant]

REACTIONS (1)
  - Incorrect dose administered [None]
